FAERS Safety Report 11553026 (Version 1)
Quarter: 2015Q3

REPORT INFORMATION
  Report Type: Spontaneous
  Country: US (occurrence: None)
  Receive Date: 20150924
  Receipt Date: 20150924
  Transmission Date: 20151125
  Serious: Yes (Other)
  Sender: FDA-Public Use
  Company Number: None

PATIENT
  Age: 81 Year
  Sex: Female

DRUGS (1)
  1. ADCIRCA [Suspect]
     Active Substance: TADALAFIL
     Indication: PULMONARY ARTERIAL HYPERTENSION
     Route: 048
     Dates: start: 20140926, end: 20150922

REACTIONS (5)
  - Drug ineffective [None]
  - Breast pain [None]
  - Anaemia [None]
  - Epistaxis [None]
  - Fluid retention [None]

NARRATIVE: CASE EVENT DATE: 20150922
